FAERS Safety Report 8457677-3 (Version None)
Quarter: 2012Q2

REPORT INFORMATION
  Report Type: 
  Country: None (occurrence: None)
  Receive Date: 20120618
  Receipt Date: 20120618
  Transmission Date: 20120825
  Serious: Yes (Other)
  Sender: FDA-Public Use
  Company Number: None

PATIENT
  Sex: Female
  Weight: 74.8435 kg

DRUGS (1)
  1. LYRICA [Suspect]
     Indication: MUSCULOSKELETAL PAIN
     Dosage: 1 TABLET 1X A DAY
     Dates: start: 20120525

REACTIONS (3)
  - BALANCE DISORDER [None]
  - TREMOR [None]
  - DIZZINESS [None]
